FAERS Safety Report 6462722-0 (Version None)
Quarter: 2009Q4

REPORT INFORMATION
  Report Type: 
  Country: None (occurrence: None)
  Receive Date: 20091130
  Receipt Date: 20091123
  Transmission Date: 20100525
  Serious: Yes (Hospitalization)
  Sender: FDA-Public Use
  Company Number: ES-B.I. PHARMACEUTICALS,INC./RIDGEFIELD-2009-DE-06902GD

PATIENT
  Age: 56 Year
  Sex: Male

DRUGS (6)
  1. CLONIDINE [Suspect]
     Indication: NEURALGIA
     Dosage: 225 MCG
     Route: 037
  2. CLONIDINE [Suspect]
     Dosage: 250-275 MCG
     Route: 037
  3. CLONIDINE [Suspect]
     Dosage: 1271 MCG
     Route: 037
  4. MORPHINE [Suspect]
     Indication: NEURALGIA
     Dosage: 3 MG
     Route: 037
  5. MORPHINE [Suspect]
     Dosage: 3-6 MG
     Route: 037
  6. MORPHINE [Suspect]
     Dosage: 34 MG
     Route: 037

REACTIONS (5)
  - HYPERAESTHESIA [None]
  - INFUSION SITE MASS [None]
  - MUSCLE ATROPHY [None]
  - MUSCLE SPASTICITY [None]
  - SPINAL CORD COMPRESSION [None]
